FAERS Safety Report 15769729 (Version 2)
Quarter: 2019Q1

REPORT INFORMATION
  Report Type: Spontaneous
  Country: FR (occurrence: FR)
  Receive Date: 20181228
  Receipt Date: 20190307
  Transmission Date: 20190417
  Serious: Yes (Hospitalization)
  Sender: FDA-Public Use
  Company Number: FR-AUROBINDO-AUR-APL-2018-063007

PATIENT

DRUGS (7)
  1. PARIET [Concomitant]
     Active Substance: RABEPRAZOLE SODIUM
     Indication: PRODUCT USED FOR UNKNOWN INDICATION
     Dosage: UNK
     Route: 065
  2. LODOZ [Concomitant]
     Active Substance: BISOPROLOL FUMARATE\HYDROCHLOROTHIAZIDE
     Indication: MITRAL VALVE DISEASE
     Dosage: UNK
     Route: 065
  3. TRIATEC [Concomitant]
     Indication: MITRAL VALVE DISEASE
     Dosage: UNK
     Route: 065
  4. PREVISCAN [Concomitant]
     Indication: MITRAL VALVE DISEASE
     Dosage: UNK
     Route: 065
     Dates: end: 201802
  5. ASPIRINE [Concomitant]
     Active Substance: ASPIRIN
     Indication: PRODUCT USED FOR UNKNOWN INDICATION
     Dosage: UNK
     Route: 065
  6. AMOXICILLIN+CLAVULANIC ACID FILM-COATED TABLETS [Suspect]
     Active Substance: AMOXICILLIN\CLAVULANIC ACID
     Indication: PNEUMONIA
     Dosage: 6 DOSAGE FORM, DAILY (2 DF, TID)
     Route: 065
     Dates: start: 20180111, end: 20180121
  7. MORPHINE SULFATE. [Concomitant]
     Active Substance: MORPHINE SULFATE
     Indication: PRODUCT USED FOR UNKNOWN INDICATION
     Dosage: UNK
     Route: 065

REACTIONS (11)
  - Nausea [Unknown]
  - Pain in extremity [Not Recovered/Not Resolved]
  - Haematoma [Recovering/Resolving]
  - International normalised ratio increased [Unknown]
  - Medication error [Not Recovered/Not Resolved]
  - Gait disturbance [Not Recovered/Not Resolved]
  - Labelled drug-drug interaction medication error [Not Recovered/Not Resolved]
  - Peripheral coldness [Unknown]
  - Product substitution issue [Not Recovered/Not Resolved]
  - Decreased appetite [Unknown]
  - Vomiting [Recovered/Resolved]

NARRATIVE: CASE EVENT DATE: 20180111
